FAERS Safety Report 8499784-5 (Version None)
Quarter: 2012Q3

REPORT INFORMATION
  Report Type: 
  Country: None (occurrence: None)
  Receive Date: 20120710
  Receipt Date: 20120702
  Transmission Date: 20120928
  Serious: No
  Sender: FDA-Public Use
  Company Number: US-BAYER-2012-066971

PATIENT
  Age: 45 Year
  Sex: Female

DRUGS (3)
  1. ALEVE (CAPLET) [Suspect]
     Indication: BACK PAIN
     Dosage: 2 DF, BID
     Route: 048
  2. ALEVE (CAPLET) [Suspect]
     Indication: PAIN IN EXTREMITY
  3. ALEVE (CAPLET) [Suspect]
     Indication: MYALGIA

REACTIONS (1)
  - NO ADVERSE EVENT [None]
